FAERS Safety Report 22245414 (Version 2)
Quarter: 2023Q2

REPORT INFORMATION
  Report Type: Spontaneous
  Country: IT (occurrence: IT)
  Receive Date: 20230424
  Receipt Date: 20230518
  Transmission Date: 20230722
  Serious: Yes (Other)
  Sender: FDA-Public Use
  Company Number: None

PATIENT
  Age: 85 Year
  Sex: Female

DRUGS (4)
  1. GLECAPREVIR\PIBRENTASVIR [Suspect]
     Active Substance: GLECAPREVIR\PIBRENTASVIR
     Indication: Chronic hepatitis C
     Dosage: 3 CAPS PER DAY
     Route: 048
     Dates: start: 20220715, end: 20220908
  2. VITAMIN K [Concomitant]
     Active Substance: PHYTONADIONE
     Indication: Product used for unknown indication
     Dosage: INTRAVENOUS
  3. ENOXAPARIN SODIUM [Suspect]
     Active Substance: ENOXAPARIN SODIUM
     Indication: International normalised ratio increased
     Dosage: CLEXANE 0.4 1 FL SUBCUTANEOUSLY PER DAY, AFTER COUMADIN SUSPENSION
     Route: 058
     Dates: start: 20220825
  4. COUMADIN [Suspect]
     Active Substance: WARFARIN SODIUM
     Indication: Atrial fibrillation
     Dosage: SECOND INR TARGET 2-3
     Route: 048
     Dates: start: 20220816, end: 20220822

REACTIONS (3)
  - Atrial fibrillation [Not Recovered/Not Resolved]
  - Haematuria [Recovered/Resolved]
  - Hydronephrosis [Unknown]

NARRATIVE: CASE EVENT DATE: 20220811
